FAERS Safety Report 5451792-4 (Version None)
Quarter: 2007Q3

REPORT INFORMATION
  Report Type: 
  Country: None (occurrence: None)
  Receive Date: 20070913
  Receipt Date: 20070901
  Transmission Date: 20080115
  Serious: Yes (Other)
  Sender: FDA-Public Use
  Company Number: US-PFIZER INC-2007074902

PATIENT
  Sex: Male
  Weight: 99.545 kg

DRUGS (1)
  1. CHANTIX [Suspect]
     Indication: SMOKING CESSATION THERAPY

REACTIONS (3)
  - HOMICIDAL IDEATION [None]
  - IRRITABILITY [None]
  - PERSONALITY CHANGE [None]
